FAERS Safety Report 6742391-2 (Version None)
Quarter: 2010Q2

REPORT INFORMATION
  Report Type: 
  Country: None (occurrence: None)
  Receive Date: 20100526
  Receipt Date: 20100513
  Transmission Date: 20101027
  Serious: No
  Sender: FDA-Public Use
  Company Number: US-B.I. PHARMACEUTICALS,INC./RIDGEFIELD-2010-BP-05488BP

PATIENT
  Sex: Female

DRUGS (5)
  1. ZANTAC 75 [Suspect]
     Route: 048
     Dates: start: 20100501, end: 20100512
  2. VASOTEC [Concomitant]
     Indication: HYPERTENSION
  3. BYSTOLIC [Concomitant]
     Indication: HYPERTENSION
  4. NORVASC [Concomitant]
     Indication: HYPERTENSION
  5. PREMARIN [Concomitant]
     Indication: HOT FLUSH

REACTIONS (1)
  - BLOOD PRESSURE INCREASED [None]
